FAERS Safety Report 25264678 (Version 2)
Quarter: 2025Q2

REPORT INFORMATION
  Report Type: Spontaneous
  Country: US (occurrence: US)
  Receive Date: 20250502
  Receipt Date: 20250603
  Transmission Date: 20250717
  Serious: No
  Sender: PFIZER
  Company Number: US-PFIZER INC-202500090763

PATIENT
  Age: 61 Year
  Sex: Male
  Weight: 90.72 kg

DRUGS (1)
  1. PAXLOVID [Suspect]
     Active Substance: NIRMATRELVIR\RITONAVIR
     Indication: COVID-19 treatment
     Dosage: THREE TABLETS AND ONE PACKET, YOU TOOK IN THE MORNING AND ONCE AND THREE TABLETS, YOU TOOK IN ONE
     Dates: start: 20250415, end: 20250420

REACTIONS (1)
  - Therapeutic product effect incomplete [Unknown]
